FAERS Safety Report 6078318-9 (Version None)
Quarter: 2009Q1

REPORT INFORMATION
  Report Type: 
  Country: None (occurrence: None)
  Receive Date: 20090213
  Receipt Date: 20090203
  Transmission Date: 20090719
  Serious: Yes (Hospitalization)
  Sender: FDA-Public Use
  Company Number: FR-WYE-H08074509

PATIENT
  Sex: Female

DRUGS (4)
  1. EFFEXOR XR [Suspect]
     Indication: MAJOR DEPRESSION
     Route: 048
     Dates: start: 20080619, end: 20080706
  2. EFFEXOR XR [Suspect]
     Route: 048
     Dates: start: 20080707, end: 20081102
  3. EFFEXOR XR [Suspect]
     Route: 048
     Dates: start: 20081108
  4. DIANE [Concomitant]
     Dosage: UNKNOWN

REACTIONS (1)
  - GENITAL PAIN [None]
